FAERS Safety Report 25934693 (Version 1)
Quarter: 2025Q4

REPORT INFORMATION
  Report Type: Spontaneous
  Country: EU (occurrence: EU)
  Receive Date: 20251017
  Receipt Date: 20251017
  Transmission Date: 20260118
  Serious: Yes (Other)
  Sender: RANBAXY
  Company Number: EU-SUN PHARMACEUTICAL INDUSTRIES LTD-2025R1-532006

PATIENT
  Age: 72 Year
  Sex: Male

DRUGS (2)
  1. CINNARIZINE [Suspect]
     Active Substance: CINNARIZINE
     Indication: Vertigo
     Dosage: UNK
     Route: 065
  2. DIMENHYDRINATE [Suspect]
     Active Substance: DIMENHYDRINATE
     Indication: Vertigo
     Dosage: UNK
     Route: 065

REACTIONS (1)
  - Seizure [Unknown]
